FAERS Safety Report 8576429-7 (Version None)
Quarter: 2012Q3

REPORT INFORMATION
  Report Type: 
  Country: None (occurrence: None)
  Receive Date: 20120807
  Receipt Date: 20120606
  Transmission Date: 20120928
  Serious: Yes (Other)
  Sender: FDA-Public Use
  Company Number: FR-ROCHE-1095810

PATIENT
  Sex: Female

DRUGS (10)
  1. IRINOTECAN HCL [Suspect]
     Indication: PRODUCT USED FOR UNKNOWN INDICATION
     Dates: start: 20090922, end: 20100210
  2. AVASTIN [Suspect]
     Indication: COLON CANCER
     Dates: start: 20100406, end: 20101110
  3. FLUOROURACIL [Suspect]
     Dates: start: 20101123, end: 20110118
  4. AVASTIN [Suspect]
     Dates: start: 20101123, end: 20110118
  5. FLUOROURACIL [Suspect]
     Indication: PRODUCT USED FOR UNKNOWN INDICATION
     Dates: start: 20090922, end: 20100210
  6. IRINOTECAN HCL [Suspect]
     Dates: start: 20101123
  7. LEUCOVORIN CALCIUM [Suspect]
     Dates: start: 20101123, end: 20110118
  8. AVASTIN [Suspect]
     Dates: start: 20101220, end: 20110221
  9. CAPECITABINE [Suspect]
     Indication: PRODUCT USED FOR UNKNOWN INDICATION
     Dates: start: 20101220, end: 20110221
  10. LEUCOVORIN CALCIUM [Suspect]
     Indication: PRODUCT USED FOR UNKNOWN INDICATION
     Dates: start: 20090922, end: 20120210

REACTIONS (2)
  - NEUROPATHY PERIPHERAL [None]
  - DISEASE PROGRESSION [None]
